FAERS Safety Report 5725425-3 (Version None)
Quarter: 2008Q2

REPORT INFORMATION
  Report Type: 
  Country: None (occurrence: None)
  Receive Date: 20080501
  Receipt Date: 20080422
  Transmission Date: 20081010
  Serious: Yes (Hospitalization)
  Sender: FDA-Public Use
  Company Number: BR-ABBOTT-08P-020-0448699-00

PATIENT
  Age: 45 Year
  Sex: Female
  Weight: 60 kg

DRUGS (2)
  1. HUMIRA [Suspect]
     Indication: CROHN'S DISEASE
     Route: 058
     Dates: end: 20080310
  2. METRONIDAZOLE HCL [Concomitant]
     Indication: CROHN'S DISEASE

REACTIONS (9)
  - ABDOMINAL DISTENSION [None]
  - ABDOMINAL PAIN [None]
  - DIARRHOEA [None]
  - INTESTINAL DILATATION [None]
  - INTESTINAL OBSTRUCTION [None]
  - MYALGIA [None]
  - PAIN [None]
  - PYREXIA [None]
  - VOMITING [None]
